FAERS Safety Report 4735572-0 (Version None)
Quarter: 2005Q3

REPORT INFORMATION
  Report Type: 
  Country: None (occurrence: None)
  Receive Date: 20050801
  Receipt Date: 20050801
  Transmission Date: 20060218
  Serious: No
  Sender: FDA-Public Use
  Company Number: None

PATIENT
  Age: 69 Year
  Sex: Female

DRUGS (2)
  1. ZYRTEC [Suspect]
     Indication: BRONCHITIS
     Dosage: 1 CHEWED QD
     Route: 048
     Dates: start: 20050725, end: 20050730
  2. ZYRTEC [Suspect]
     Indication: HYPERSENSITIVITY
     Dosage: 1 CHEWED QD
     Route: 048
     Dates: start: 20050725, end: 20050730

REACTIONS (1)
  - EPISTAXIS [None]
